FAERS Safety Report 15437191 (Version 1)
Quarter: 2018Q3

REPORT INFORMATION
  Report Type: Report from Study
  Country: US (occurrence: US)
  Receive Date: 20180927
  Receipt Date: 20180927
  Transmission Date: 20181010
  Serious: No
  Sender: FDA-Public Use
  Company Number: US-CLOVIS ONCOLOGY-CLO-2018-000756

PATIENT
  Age: 60 Year
  Sex: Female

DRUGS (2)
  1. RUBRACA [Suspect]
     Active Substance: RUCAPARIB CAMSYLATE
     Indication: OVARIAN CANCER
     Dosage: 600 MG, BID
     Route: 048
     Dates: start: 20180612
  2. RUBRACA [Suspect]
     Active Substance: RUCAPARIB CAMSYLATE
     Dosage: 200 MG AM/400 MG PM, BID
     Route: 048
     Dates: start: 20180612

REACTIONS (13)
  - Weight decreased [Unknown]
  - Constipation [Unknown]
  - Amnesia [Unknown]
  - Drug dose omission [Unknown]
  - Product solubility abnormal [Unknown]
  - Dysphagia [Recovering/Resolving]
  - Abdominal pain [Unknown]
  - Fatigue [Recovering/Resolving]
  - Nausea [Recovered/Resolved]
  - Carbohydrate antigen 125 increased [Recovered/Resolved]
  - Dysgeusia [Unknown]
  - Hypersomnia [Not Recovered/Not Resolved]
  - Abdominal pain upper [Unknown]

NARRATIVE: CASE EVENT DATE: 2018
